FAERS Safety Report 20839890 (Version 6)
Quarter: 2024Q4

REPORT INFORMATION
  Report Type: Report from Study
  Country: DE (occurrence: DE)
  Receive Date: 20220517
  Receipt Date: 20241007
  Transmission Date: 20250115
  Serious: Yes (Other)
  Sender: PFIZER
  Company Number: DE-ROCHE-3001902

PATIENT
  Age: 58 Year
  Sex: Female
  Weight: 50.7 kg

DRUGS (6)
  1. TRASTUZUMAB [Suspect]
     Active Substance: TRASTUZUMAB
     Indication: Breast cancer
     Dosage: LAST DOSE PRIOR TO EVENT FREQUENCY TEXT:1 PER CYCLE
     Route: 041
     Dates: start: 20211214
  2. PERTUZUMAB [Suspect]
     Active Substance: PERTUZUMAB
     Indication: Breast cancer
     Dosage: 840 MG
     Route: 042
     Dates: start: 20211123
  3. PERTUZUMAB [Suspect]
     Active Substance: PERTUZUMAB
     Dosage: 420 MG
     Route: 042
     Dates: start: 20211214, end: 20211214
  4. PACLITAXEL [Suspect]
     Active Substance: PACLITAXEL
     Indication: Breast cancer
     Dosage: 94 MG
     Dates: start: 20211123, end: 20220322
  5. PACLITAXEL [Suspect]
     Active Substance: PACLITAXEL
     Dosage: 125 MG
     Dates: start: 20211228, end: 20211228
  6. LIDOCAINE [Concomitant]
     Active Substance: LIDOCAINE
     Dosage: 1 G
     Route: 048
     Dates: start: 20220104

REACTIONS (7)
  - Neutropenia [Recovered/Resolved]
  - Leukopenia [Recovered/Resolved]
  - Polyneuropathy [Recovered/Resolved]
  - Infusion related reaction [Unknown]
  - Mucosal inflammation [Recovered/Resolved]
  - Cough [Recovered/Resolved]
  - Diarrhoea [Recovered/Resolved]

NARRATIVE: CASE EVENT DATE: 20211214
